FAERS Safety Report 14014417 (Version 1)
Quarter: 2017Q3

REPORT INFORMATION
  Report Type: Spontaneous
  Country: US (occurrence: US)
  Receive Date: 20170926
  Receipt Date: 20170926
  Transmission Date: 20171128
  Serious: No
  Sender: FDA-Public Use
  Company Number: None

PATIENT
  Age: 57 Year
  Sex: Female
  Weight: 96.75 kg

DRUGS (14)
  1. RANITIDINE. [Concomitant]
     Active Substance: RANITIDINE
  2. EPIPEN [Concomitant]
     Active Substance: EPINEPHRINE
  3. PROPANOLOL ER [Concomitant]
  4. METFORMIN [Concomitant]
     Active Substance: METFORMIN HYDROCHLORIDE
  5. ESTRADIOL. [Concomitant]
     Active Substance: ESTRADIOL
  6. NIACIN. [Concomitant]
     Active Substance: NIACIN
  7. PROAIR HFA [Concomitant]
     Active Substance: ALBUTEROL SULFATE
  8. AZESTALINE [Concomitant]
  9. ARMOUR THYROID [Concomitant]
     Active Substance: THYROID, PORCINE
  10. FLUTICASONE PROPIONATE. [Concomitant]
     Active Substance: FLUTICASONE PROPIONATE
  11. BYDUREON [Suspect]
     Active Substance: EXENATIDE
     Indication: TYPE 2 DIABETES MELLITUS
     Dosage: 4 PENS; ONCE PER WEEK; SUBCUTANEOUS INJECTION?
     Route: 058
     Dates: start: 20170823, end: 20170917
  12. PROGESTERONE. [Concomitant]
     Active Substance: PROGESTERONE
  13. VITAMIN D3 [Concomitant]
     Active Substance: CHOLECALCIFEROL
  14. B-COMPLEX VITAMIN [Concomitant]

REACTIONS (4)
  - Injection site pruritus [None]
  - Injection site mass [None]
  - Injection site swelling [None]
  - Injection site pain [None]

NARRATIVE: CASE EVENT DATE: 20170917
